FAERS Safety Report 6578103-5 (Version None)
Quarter: 2010Q1

REPORT INFORMATION
  Report Type: 
  Country: None (occurrence: None)
  Receive Date: 20100211
  Receipt Date: 20100201
  Transmission Date: 20100710
  Serious: Yes (Other)
  Sender: FDA-Public Use
  Company Number: IT-BAXTER-2010BH002476

PATIENT
  Age: 59 Year
  Sex: Male

DRUGS (6)
  1. GAMMAGARD S/D [Suspect]
     Indication: DEMYELINATING POLYNEUROPATHY
     Route: 042
     Dates: start: 20091202
  2. GAMMAGARD S/D [Suspect]
     Indication: OFF LABEL USE
     Route: 042
     Dates: start: 20091202
  3. FLEBOGAMMA [Suspect]
     Indication: DEMYELINATING POLYNEUROPATHY
     Route: 042
  4. SANDIMMUNE [Concomitant]
     Route: 048
  5. CARDURA /IRE/ [Concomitant]
     Route: 048
  6. BISOPROLOL [Concomitant]
     Route: 048

REACTIONS (1)
  - DEEP VEIN THROMBOSIS [None]
